FAERS Safety Report 7753584-X (Version None)
Quarter: 2011Q3

REPORT INFORMATION
  Report Type: 
  Country: None (occurrence: None)
  Receive Date: 20110915
  Receipt Date: 20110908
  Transmission Date: 20111222
  Serious: Yes (Hospitalization)
  Sender: FDA-Public Use
  Company Number: US-GLAXOSMITHKLINE-A0896839A

PATIENT
  Age: 53 Year
  Sex: Female
  Weight: 101.8 kg

DRUGS (5)
  1. AVANDIA [Suspect]
     Indication: DIABETES MELLITUS
     Dates: start: 20031203, end: 20080521
  2. LIPITOR [Concomitant]
  3. GLUCOPHAGE [Concomitant]
  4. GLUCOTROL [Concomitant]
  5. METFORMIN HYDROCHLORIDE [Concomitant]

REACTIONS (4)
  - HYPERLIPIDAEMIA [None]
  - HYPERTENSION [None]
  - MYOCARDIAL INFARCTION [None]
  - CORONARY ARTERY DISEASE [None]
